FAERS Safety Report 13166601 (Version 1)
Quarter: 2017Q1

REPORT INFORMATION
  Report Type: Spontaneous
  Country: US (occurrence: US)
  Receive Date: 20170127
  Receipt Date: 20170127
  Transmission Date: 20170428
  Serious: No
  Sender: FDA-Public Use
  Company Number: None

PATIENT
  Age: 64 Year
  Sex: Female

DRUGS (1)
  1. CAPECITABINE 500 ACCORD [Suspect]
     Active Substance: CAPECITABINE
     Indication: BREAST CANCER
     Dosage: 1500MG BID X7D, OFF 7D PO
     Route: 048
     Dates: start: 20161104

REACTIONS (1)
  - Visual impairment [None]

NARRATIVE: CASE EVENT DATE: 20170120
